FAERS Safety Report 10057541 (Version 2)
Quarter: 2014Q2

REPORT INFORMATION
  Report Type: Report from Study
  Country: CO (occurrence: CO)
  Receive Date: 20140404
  Receipt Date: 20140407
  Transmission Date: 20141212
  Serious: Yes (Other)
  Sender: FDA-Public Use
  Company Number: CO-ROCHE-1376478

PATIENT
  Sex: Female
  Weight: 58 kg

DRUGS (1)
  1. RANIBIZUMAB [Suspect]
     Indication: RETINITIS
     Route: 050
     Dates: start: 20140209, end: 20140209

REACTIONS (2)
  - Eye irritation [Recovered/Resolved]
  - Headache [Recovered/Resolved]
